FAERS Safety Report 24870482 (Version 1)
Quarter: 2025Q1

REPORT INFORMATION
  Report Type: Spontaneous
  Country: ES (occurrence: ES)
  Receive Date: 20250121
  Receipt Date: 20250121
  Transmission Date: 20250409
  Serious: Yes (Hospitalization)
  Sender: SANDOZ
  Company Number: ES-SANDOZ-SDZ2025ES003473

PATIENT
  Age: 37 Year
  Sex: Female

DRUGS (2)
  1. BUPROPION [Suspect]
     Active Substance: BUPROPION
     Indication: Smoking cessation therapy
     Dosage: 150 MG/DAY
     Route: 048
  2. BUPROPION [Suspect]
     Active Substance: BUPROPION
     Dosage: 300 MG/DAY
     Route: 048

REACTIONS (2)
  - Serum sickness [Recovered/Resolved]
  - Prescription drug used without a prescription [Unknown]
